FAERS Safety Report 19644884 (Version 2)
Quarter: 2021Q3

REPORT INFORMATION
  Report Type: Spontaneous
  Country: DE (occurrence: DE)
  Receive Date: 20210802
  Receipt Date: 20210818
  Transmission Date: 20211014
  Serious: Yes (Hospitalization, Other)
  Sender: FDA-Public Use
  Company Number: DE-ORGANON-O2107DEU002482

PATIENT
  Age: 25 Year
  Sex: Female
  Weight: 52 kg

DRUGS (1)
  1. BETAMETHASONE VALERATE. [Suspect]
     Active Substance: BETAMETHASONE VALERATE
     Indication: DERMATITIS ATOPIC
     Dosage: ((PRESCRIPTION) ON AND OFF AS ACUTE TREATMENT: REDUCED FROM DAILY TO TWICE A WEEK, NEVER LESS THAN T
     Route: 061
     Dates: start: 201804, end: 201902

REACTIONS (10)
  - Neuralgia [Unknown]
  - Lymphadenopathy [Recovered/Resolved]
  - Therapeutic product effect decreased [Unknown]
  - Swelling face [Unknown]
  - Dermatitis atopic [Recovering/Resolving]
  - Cataract [Recovered/Resolved with Sequelae]
  - Feeling cold [Unknown]
  - Skin burning sensation [Unknown]
  - Feeling hot [Unknown]
  - Facial pain [Recovered/Resolved]

NARRATIVE: CASE EVENT DATE: 201902
